FAERS Safety Report 4927930-6 (Version None)
Quarter: 2006Q1

REPORT INFORMATION
  Report Type: 
  Country: None (occurrence: None)
  Receive Date: 20060223
  Receipt Date: 20060215
  Transmission Date: 20060701
  Serious: Yes (Hospitalization, Other)
  Sender: FDA-Public Use
  Company Number: 2006023333

PATIENT
  Age: 71 Year
  Sex: Male

DRUGS (1)
  1. DOXAZOSIN (DOXAZOSIN) [Suspect]
     Indication: BENIGN PROSTATIC HYPERPLASIA
     Dosage: 4 MG (4 MG, SINGLE INTERVAL:  EVERYDAY), ORAL
     Route: 048
     Dates: start: 19971207

REACTIONS (2)
  - INTERVERTEBRAL DISC PROTRUSION [None]
  - PAIN [None]
